FAERS Safety Report 10562369 (Version 1)
Quarter: 2014Q4

REPORT INFORMATION
  Report Type: Spontaneous
  Country: US (occurrence: None)
  Receive Date: 20141103
  Receipt Date: 20141103
  Transmission Date: 20150529
  Serious: Yes (Hospitalization)
  Sender: FDA-Public Use
  Company Number: None

PATIENT
  Age: 68 Year
  Sex: Female
  Weight: 44.77 kg

DRUGS (5)
  1. LEUCOVORIN CALCIUM. [Suspect]
     Active Substance: LEUCOVORIN CALCIUM
  2. 5-FLUOROURACIL (5-FU) [Suspect]
     Active Substance: FLUOROURACIL
  3. CAMPTOSAR [Suspect]
     Active Substance: IRINOTECAN HYDROCHLORIDE
  4. XELODA [Suspect]
     Active Substance: CAPECITABINE
  5. LOVENOX [Concomitant]
     Active Substance: ENOXAPARIN SODIUM

REACTIONS (11)
  - Haemoglobin decreased [None]
  - Anastomotic ulcer haemorrhage [None]
  - Gastrointestinal haemorrhage [None]
  - Syncope [None]
  - Vascular pseudoaneurysm [None]
  - Wound infection staphylococcal [None]
  - Laceration [None]
  - Gastric haemorrhage [None]
  - Head injury [None]
  - Pulmonary embolism [None]
  - Haematemesis [None]

NARRATIVE: CASE EVENT DATE: 20140821
